FAERS Safety Report 8909022 (Version 2)
Quarter: 2012Q4

REPORT INFORMATION
  Report Type: Report from Study
  Country: US (occurrence: US)
  Receive Date: 20121114
  Receipt Date: 20121127
  Transmission Date: 20130627
  Serious: Yes (Hospitalization)
  Sender: FDA-Public Use
  Company Number: US-ACTELION-A-NJ2012-74344

PATIENT
  Age: 40 Year
  Sex: Female

DRUGS (3)
  1. TRACLEER [Suspect]
     Indication: PULMONARY ARTERIAL HYPERTENSION
     Dosage: 62.5 mg, bid
     Route: 048
     Dates: start: 201207
  2. SILDENAFIL [Concomitant]
     Dosage: 20 mg, tid
  3. CYTOXAN [Concomitant]
     Route: 041

REACTIONS (2)
  - Poor peripheral circulation [Not Recovered/Not Resolved]
  - Localised infection [Not Recovered/Not Resolved]
